FAERS Safety Report 11659882 (Version 1)
Quarter: 2015Q4

REPORT INFORMATION
  Report Type: Spontaneous
  Country: US (occurrence: None)
  Receive Date: 20151023
  Receipt Date: 20151023
  Transmission Date: 20160304
  Serious: Yes (Disabling, Other)
  Sender: FDA-Public Use
  Company Number: None

PATIENT
  Age: 63 Year
  Sex: Female
  Weight: 68.04 kg

DRUGS (1)
  1. LYRICA [Suspect]
     Active Substance: PREGABALIN
     Indication: PAIN MANAGEMENT
     Dosage: FOUR 100 MG. PILLS A DAY
     Route: 048
     Dates: start: 20080315, end: 20150821

REACTIONS (2)
  - Burning sensation [None]
  - Drug withdrawal syndrome [None]

NARRATIVE: CASE EVENT DATE: 20151022
